FAERS Safety Report 7479739 (Version 3)
Quarter: 2013Q4

REPORT INFORMATION
  Report Type: Spontaneous
  Country: US (occurrence: US)
  Receive Date: 20100716
  Receipt Date: 20131216
  Transmission Date: 20140711
  Serious: Yes (Hospitalization, Other)
  Sender: FDA-Public Use
  Company Number: US-BAYER-201027780NA

PATIENT
  Age: 24 Year
  Sex: Female
  Weight: 67.27 kg

DRUGS (3)
  1. OCELLA [Suspect]
     Indication: ORAL CONTRACEPTION
     Route: 048
     Dates: start: 200808, end: 20100315
  2. YASMIN [Suspect]
     Indication: ORAL CONTRACEPTION
     Route: 048
     Dates: start: 200808, end: 20100315
  3. MOTRIN [Concomitant]

REACTIONS (17)
  - Weight increased [Recovered/Resolved]
  - Blood cholesterol increased [Unknown]
  - Vaginal haemorrhage [Unknown]
  - Cholelithiasis [Unknown]
  - Chorioretinopathy [Recovered/Resolved]
  - Appendicitis [Unknown]
  - Vomiting [Unknown]
  - Abdominal pain lower [Unknown]
  - Ovarian cyst ruptured [Not Recovered/Not Resolved]
  - Abdominal pain [Unknown]
  - Vomiting [Unknown]
  - Abdominal pain upper [Unknown]
  - Biliary colic [Unknown]
  - Visual field defect [Recovered/Resolved]
  - Abdominal discomfort [Unknown]
  - Nausea [Unknown]
  - Cholecystectomy [None]
